FAERS Safety Report 7257168-1 (Version None)
Quarter: 2011Q1

REPORT INFORMATION
  Report Type: 
  Country: None (occurrence: None)
  Receive Date: 20110129
  Receipt Date: 20100818
  Transmission Date: 20110831
  Serious: No
  Sender: FDA-Public Use
  Company Number: US-ABBOTT-10P-163-0664697-00

PATIENT
  Age: 40 Year
  Sex: Female

DRUGS (9)
  1. ESTRIN [Concomitant]
     Indication: HORMONE REPLACEMENT THERAPY
  2. PROZAC [Concomitant]
     Indication: DEPRESSION
  3. PROTONIX [Concomitant]
     Indication: GASTROOESOPHAGEAL REFLUX DISEASE
  4. MTX [Concomitant]
     Indication: RHEUMATOID ARTHRITIS
  5. HUMIRA [Suspect]
     Indication: RHEUMATOID ARTHRITIS
     Dates: start: 20091201, end: 20100726
  6. SYNTHROID [Concomitant]
     Indication: THYROIDECTOMY
  7. TOPROL-XL [Concomitant]
     Indication: HEART RATE IRREGULAR
  8. LAMICTAL [Concomitant]
     Indication: DEPRESSION
  9. SINGULAIR [Concomitant]
     Indication: SEASONAL ALLERGY

REACTIONS (3)
  - SINUSITIS [None]
  - EAR INFECTION [None]
  - ARTHRALGIA [None]
